FAERS Safety Report 11855329 (Version 1)
Quarter: 2015Q4

REPORT INFORMATION
  Report Type: Spontaneous
  Country: US (occurrence: US)
  Receive Date: 20151221
  Receipt Date: 20151221
  Transmission Date: 20160305
  Serious: Yes (Other)
  Sender: FDA-Public Use
  Company Number: PHEH2015US026271

PATIENT
  Age: 37 Year
  Sex: Female

DRUGS (3)
  1. NICODERM CQ [Interacting]
     Active Substance: NICOTINE
     Indication: SMOKING CESSATION THERAPY
     Dosage: UNK
     Route: 062
     Dates: start: 20151113
  2. TRILEPTAL [Suspect]
     Active Substance: OXCARBAZEPINE
     Indication: SEIZURE
     Dosage: UNK
     Route: 065
  3. NICODERM CQ [Interacting]
     Active Substance: NICOTINE
     Dosage: UNK
     Route: 062
     Dates: start: 20151204

REACTIONS (4)
  - Seizure [Not Recovered/Not Resolved]
  - Drug interaction [Unknown]
  - Nicotine dependence [Not Recovered/Not Resolved]
  - Wrong technique in product usage process [Unknown]

NARRATIVE: CASE EVENT DATE: 20151115
